FAERS Safety Report 14584160 (Version 1)
Quarter: 2018Q1

REPORT INFORMATION
  Report Type: Spontaneous
  Country: US (occurrence: US)
  Receive Date: 20180228
  Receipt Date: 20180228
  Transmission Date: 20180509
  Serious: Yes (Death, Hospitalization, Other)
  Sender: FDA-Public Use
  Company Number: US-ACELLA PHARMACEUTICALS, LLC-2042747

PATIENT
  Age: 79 Year
  Sex: Female

DRUGS (1)
  1. GABAPENTIN. [Suspect]
     Active Substance: GABAPENTIN

REACTIONS (8)
  - Fall [Unknown]
  - Death [Fatal]
  - Dizziness [Unknown]
  - Septic shock [Fatal]
  - Cardiovascular insufficiency [Fatal]
  - Fluid overload [Unknown]
  - Asthenia [Unknown]
  - Pneumonia [Fatal]
